FAERS Safety Report 7128311-X (Version None)
Quarter: 2010Q4

REPORT INFORMATION
  Report Type: 
  Country: None (occurrence: None)
  Receive Date: 20101130
  Receipt Date: 20101118
  Transmission Date: 20110411
  Serious: Yes (Hospitalization)
  Sender: FDA-Public Use
  Company Number: PHHY2010BE77781

PATIENT
  Age: 40 Year
  Sex: Female

DRUGS (4)
  1. GLIVEC [Suspect]
     Indication: CHRONIC MYELOID LEUKAEMIA
     Dosage: 600 MG DAILY
     Route: 048
  2. GLIVEC [Suspect]
     Dosage: 400 MG DAILY
     Route: 048
  3. ANXIOLYTICS [Concomitant]
  4. ANTIDEPRESSANTS [Concomitant]

REACTIONS (2)
  - CHEST PAIN [None]
  - PANIC ATTACK [None]
